FAERS Safety Report 23382421 (Version 1)
Quarter: 2024Q1

REPORT INFORMATION
  Report Type: Spontaneous
  Country: US (occurrence: None)
  Receive Date: 20240108
  Receipt Date: 20240108
  Transmission Date: 20240409
  Serious: Yes (Death, Hospitalization)
  Sender: FDA-Public Use
  Company Number: None

PATIENT
  Age: 86 Year
  Sex: Male
  Weight: 58.5 kg

DRUGS (6)
  1. NEULASTA [Suspect]
     Active Substance: PEGFILGRASTIM
     Indication: Chemotherapy side effect prophylaxis
     Dates: start: 20240101
  2. NEULASTA [Suspect]
     Active Substance: PEGFILGRASTIM
     Indication: Neutropenia
  3. FOSINOPRIL [Concomitant]
     Active Substance: FOSINOPRIL
  4. ASPIRIN [Concomitant]
     Active Substance: ASPIRIN
  5. PLAVIX [Concomitant]
     Active Substance: CLOPIDOGREL BISULFATE
  6. GLUCOPHAGE [Concomitant]
     Active Substance: METFORMIN HYDROCHLORIDE

REACTIONS (3)
  - Acute myocardial infarction [None]
  - Anaemia [None]
  - Leukocytosis [None]

NARRATIVE: CASE EVENT DATE: 20240102
